FAERS Safety Report 9106496 (Version 1)
Quarter: 2013Q1

REPORT INFORMATION
  Report Type: Spontaneous
  Country: IT (occurrence: IT)
  Receive Date: 20130221
  Receipt Date: 20130221
  Transmission Date: 20140127
  Serious: Yes (Other)
  Sender: FDA-Public Use
  Company Number: IT-TEVA-387280ISR

PATIENT
  Age: 38 Year
  Sex: Male

DRUGS (6)
  1. FLUOROURACILE [Suspect]
     Indication: COLON CANCER
     Dosage: 2000 MILLIGRAM DAILY;
     Route: 041
     Dates: start: 20121113, end: 20121204
  2. LEVOMEFOLATE CALCIUM [Suspect]
     Indication: COLON CANCER
     Dosage: 400 MILLIGRAM DAILY;
     Route: 042
     Dates: start: 20121116, end: 20121204
  3. OXALIPLATINO [Suspect]
     Indication: COLON CANCER
     Dosage: 170 MILLIGRAM DAILY;
     Route: 042
     Dates: start: 20121116, end: 20121203
  4. NAVOBAN [Concomitant]
     Dosage: 5MG/5ML
     Route: 048
  5. ZOFRAN [Concomitant]
     Dosage: 4MG/2ML
  6. LANOXIN [Concomitant]

REACTIONS (3)
  - Hyperpyrexia [Recovered/Resolved]
  - Loss of consciousness [Recovered/Resolved]
  - Presyncope [Recovered/Resolved]
